FAERS Safety Report 23506277 (Version 1)
Quarter: 2024Q1

REPORT INFORMATION
  Report Type: Spontaneous
  Country: US (occurrence: US)
  Receive Date: 20240209
  Receipt Date: 20240209
  Transmission Date: 20240410
  Serious: No
  Sender: FDA-Public Use
  Company Number: US-UNIQUE PHARMACEUTICAL LABORATORIES, A DIV. OF JBCPL-2023UNI000002

PATIENT
  Sex: Male
  Weight: 107.5 kg

DRUGS (1)
  1. GLIPIZIDE [Suspect]
     Active Substance: GLIPIZIDE
     Indication: Type 2 diabetes mellitus
     Dosage: UNK, BID
     Route: 048
     Dates: start: 20221201

REACTIONS (4)
  - Blood glucose increased [Recovered/Resolved with Sequelae]
  - Drug ineffective [Unknown]
  - Product residue present [Recovered/Resolved with Sequelae]
  - Product physical issue [Recovered/Resolved with Sequelae]
